FAERS Safety Report 20686609 (Version 1)
Quarter: 2022Q2

REPORT INFORMATION
  Report Type: Spontaneous
  Country: US (occurrence: US)
  Receive Date: 20220407
  Receipt Date: 20220407
  Transmission Date: 20220721
  Serious: No
  Sender: FDA-Public Use
  Company Number: US-SA-SAC20220405001185

PATIENT
  Age: 14 Year
  Sex: Male

DRUGS (2)
  1. DUPIXENT [Suspect]
     Active Substance: DUPILUMAB
     Indication: Dermatitis allergic
     Dosage: 300 MG, QOW
     Route: 058
     Dates: start: 20220308
  2. DUPIXENT [Suspect]
     Active Substance: DUPILUMAB
     Indication: Dermatitis atopic

REACTIONS (5)
  - Pain [Unknown]
  - Sleep disorder [Unknown]
  - Rash [Unknown]
  - Product use in unapproved indication [Unknown]
  - Product use issue [Unknown]

NARRATIVE: CASE EVENT DATE: 20220308
